FAERS Safety Report 9862496 (Version 2)
Quarter: 2014Q1

REPORT INFORMATION
  Report Type: Spontaneous
  Country: FR (occurrence: FR)
  Receive Date: 20140203
  Receipt Date: 20140220
  Transmission Date: 20141002
  Serious: Yes (Hospitalization, Disabling)
  Sender: FDA-Public Use
  Company Number: FR-ASTRAZENECA-2014SE06601

PATIENT
  Age: 639 Month
  Sex: Female

DRUGS (14)
  1. SYMBICORT TBH [Suspect]
     Dosage: 320/9 UG PER DOSE, 2 INHALATIONS EVERY MORNING AND EVERY EVENING
     Route: 055
     Dates: start: 2013, end: 20140119
  2. SYMBICORT TBH [Suspect]
     Dosage: 320/9 UG PER DOSE, 2 INHALATIONS EVERY MORNING AND EVERY EVENING
     Route: 055
     Dates: start: 20140129
  3. SYMBICORT TBH [Suspect]
     Dosage: 320/9 UG PER DOSE, 2 INHALATIONS EVERY MORNING
     Route: 055
  4. LYRICA [Concomitant]
     Indication: PELVIC PAIN
     Route: 048
  5. LYRICA [Concomitant]
     Indication: NECK PAIN
     Route: 048
  6. LYRICA [Concomitant]
     Indication: BACK PAIN
     Route: 048
  7. DICODIN [Concomitant]
     Indication: PELVIC PAIN
     Dosage: LONG LASTING TREATMENT
     Route: 048
  8. DICODIN [Concomitant]
     Indication: NECK PAIN
     Dosage: LONG LASTING TREATMENT
     Route: 048
  9. DICODIN [Concomitant]
     Indication: BACK PAIN
     Dosage: LONG LASTING TREATMENT
     Route: 048
  10. EFFERALGAN CODEINE [Concomitant]
     Indication: PELVIC PAIN
     Route: 048
  11. EFFERALGAN CODEINE [Concomitant]
     Indication: NECK PAIN
     Route: 048
  12. EFFERALGAN CODEINE [Concomitant]
     Indication: BACK PAIN
     Route: 048
  13. ZOPICLONE [Concomitant]
     Indication: SLEEP DISORDER
     Dosage: EVERY EVENING
     Route: 048
  14. TERCIAN [Concomitant]
     Indication: SLEEP DISORDER
     Dosage: EVERY EVENING
     Route: 048

REACTIONS (2)
  - Abscess [Recovered/Resolved]
  - Aphonia [Not Recovered/Not Resolved]
